FAERS Safety Report 7991325-1 (Version None)
Quarter: 2011Q4

REPORT INFORMATION
  Report Type: 
  Country: None (occurrence: None)
  Receive Date: 20111219
  Receipt Date: 20111215
  Transmission Date: 20120403
  Serious: Yes (Other)
  Sender: FDA-Public Use
  Company Number: US-PFIZER INC-2011306395

PATIENT
  Sex: Female
  Weight: 52.154 kg

DRUGS (8)
  1. ASPIRIN [Concomitant]
     Indication: CEREBROVASCULAR ACCIDENT PROPHYLAXIS
     Dosage: UNK
  2. LOVAZA [Concomitant]
     Indication: EYE DISORDER
     Dosage: UNK
  3. ICAPS [Concomitant]
     Indication: EYE DISORDER
     Dosage: UNK
  4. MAGNESIUM [Concomitant]
     Indication: BONE DISORDER
     Dosage: UNK
  5. ZOVIRAX [Concomitant]
     Indication: HERPES VIRUS INFECTION
     Dosage: UNK
  6. LIPITOR [Suspect]
     Indication: BLOOD CHOLESTEROL INCREASED
     Dosage: 80 MG, DAILY
     Route: 048
     Dates: start: 20111201
  7. CALCIUM [Concomitant]
     Indication: BONE DISORDER
     Dosage: UNK
  8. BIOTIN [Concomitant]
     Indication: HAIR DISORDER
     Dosage: UNK

REACTIONS (2)
  - SENSORY DISTURBANCE [None]
  - DYSKINESIA [None]
